FAERS Safety Report 4274547-5 (Version None)
Quarter: 2004Q1

REPORT INFORMATION
  Report Type: 
  Country: None (occurrence: None)
  Receive Date: 20040120
  Receipt Date: 20040113
  Transmission Date: 20041129
  Serious: Yes (Hospitalization)
  Sender: FDA-Public Use
  Company Number: US-ROCHE-356058

PATIENT
  Sex: Male

DRUGS (1)
  1. FUZEON [Suspect]
     Indication: HIV INFECTION
     Route: 058
     Dates: start: 20030715, end: 20030815

REACTIONS (3)
  - CONVULSION [None]
  - PNEUMOCYSTIS CARINII PNEUMONIA [None]
  - VIRAL LOAD INCREASED [None]
